FAERS Safety Report 5970811-X (Version None)
Quarter: 2008Q4

REPORT INFORMATION
  Report Type: 
  Country: None (occurrence: None)
  Receive Date: 20081126
  Receipt Date: 20081113
  Transmission Date: 20090506
  Serious: No
  Sender: FDA-Public Use
  Company Number: US-ABBOTT-08P-163-0487859-00

PATIENT
  Sex: Male
  Weight: 88.984 kg

DRUGS (7)
  1. SIMCOR [Suspect]
     Indication: BLOOD TRIGLYCERIDES INCREASED
     Dosage: 1000MG/20MG 1 IN 1 D
     Route: 048
     Dates: start: 20081022
  2. SIMCOR [Suspect]
     Dosage: 750MG/20MG 1 IN 1 D
     Route: 048
     Dates: start: 20080808, end: 20081022
  3. DULOXETINE HYDROCHLORIDE [Concomitant]
     Indication: DEPRESSION
     Route: 048
  4. DULOXETINE HYDROCHLORIDE [Concomitant]
     Indication: ANXIETY
  5. DULOXETINE HYDROCHLORIDE [Concomitant]
     Indication: PAIN
  6. PRAMIPEXOLE DIHYDROCHLORIDE [Concomitant]
     Indication: RESTLESS LEGS SYNDROME
     Route: 048
  7. NADOLOL [Concomitant]
     Indication: MITRAL VALVE PROLAPSE
     Route: 048

REACTIONS (3)
  - ERYTHEMA [None]
  - PAIN OF SKIN [None]
  - SKIN IRRITATION [None]
